FAERS Safety Report 8351607-0 (Version None)
Quarter: 2012Q2

REPORT INFORMATION
  Report Type: 
  Country: None (occurrence: None)
  Receive Date: 20120511
  Receipt Date: 20120430
  Transmission Date: 20120825
  Serious: No
  Sender: FDA-Public Use
  Company Number: US-BIOGENIDEC-2011BI042316

PATIENT
  Sex: Female

DRUGS (4)
  1. TYSABRI [Suspect]
     Indication: MULTIPLE SCLEROSIS
     Route: 042
     Dates: start: 20090903, end: 20110714
  2. AVONEX [Concomitant]
     Indication: MULTIPLE SCLEROSIS
     Route: 030
     Dates: start: 20090901
  3. BACLOFEN [Concomitant]
     Indication: PAIN
     Dates: start: 20080101
  4. MORPHINE [Concomitant]

REACTIONS (3)
  - VEIN DISORDER [None]
  - FRUSTRATION [None]
  - MULTIPLE SCLEROSIS RELAPSE [None]
